FAERS Safety Report 8622623-6 (Version None)
Quarter: 2012Q3

REPORT INFORMATION
  Report Type: 
  Country: None (occurrence: None)
  Receive Date: 20120813
  Receipt Date: 20120731
  Transmission Date: 20120928
  Serious: Yes (Hospitalization)
  Sender: FDA-Public Use
  Company Number: ACO_31030_2012

PATIENT
  Age: 61 Year
  Sex: Female

DRUGS (2)
  1. BETASERON [Concomitant]
  2. AMPYRA [Suspect]
     Indication: PRODUCT USED FOR UNKNOWN INDICATION
     Dosage: 10 MG, BID
     Dates: start: 20120501

REACTIONS (2)
  - INFECTION [None]
  - NEPHROLITHIASIS [None]
